FAERS Safety Report 5063798-8 (Version None)
Quarter: 2006Q3

REPORT INFORMATION
  Report Type: 
  Country: None (occurrence: None)
  Receive Date: 20060703
  Receipt Date: 20060417
  Transmission Date: 20061208
  Serious: No
  Sender: FDA-Public Use
  Company Number: 2006S1003552

PATIENT
  Age: 44 Year
  Sex: Female

DRUGS (8)
  1. CLOZAPINE [Suspect]
     Indication: SCHIZOAFFECTIVE DISORDER
     Dosage: SEE IMAGE
     Route: 048
  2. LEVOTHYROXINE SODIUM [Concomitant]
  3. BENZTROPINE MESYLATE [Concomitant]
  4. ATORVASTATIN CALCIUM [Concomitant]
  5. PANTOPRAZOLE SODIUM [Concomitant]
  6. TEMAZEPAM [Concomitant]
  7. UREA [Concomitant]
  8. CITALOPRAM HYDROBROMIDE [Concomitant]

REACTIONS (2)
  - GRANULOCYTOPENIA [None]
  - LEUKOPENIA [None]
